FAERS Safety Report 11700737 (Version 1)
Quarter: 2015Q4

REPORT INFORMATION
  Report Type: Spontaneous
  Country: US (occurrence: US)
  Receive Date: 20151105
  Receipt Date: 20151105
  Transmission Date: 20160304
  Serious: Yes (Hospitalization, Other)
  Sender: FDA-Public Use
  Company Number: US-JNJFOC-20151022764

PATIENT
  Sex: Female
  Weight: 61.24 kg

DRUGS (1)
  1. REMICADE [Suspect]
     Active Substance: INFLIXIMAB
     Indication: CROHN^S DISEASE
     Dosage: 5-6 WEEKS
     Route: 042
     Dates: start: 2012, end: 201412

REACTIONS (6)
  - Drug hypersensitivity [Recovered/Resolved]
  - Dermatitis contact [Unknown]
  - Skin lesion [Unknown]
  - Drug hypersensitivity [Recovered/Resolved]
  - Staphylococcal infection [Unknown]
  - Psoriasis [Not Recovered/Not Resolved]

NARRATIVE: CASE EVENT DATE: 2014
